FAERS Safety Report 9149206 (Version 2)
Quarter: 2013Q2

REPORT INFORMATION
  Report Type: Spontaneous
  Country: US (occurrence: US)
  Receive Date: 20130308
  Receipt Date: 20130506
  Transmission Date: 20140414
  Serious: No
  Sender: FDA-Public Use
  Company Number: US-PFIZER INC-2013076782

PATIENT
  Age: 62 Year
  Sex: Female
  Weight: 79.37 kg

DRUGS (9)
  1. PROTONIX [Suspect]
     Indication: GASTRIC ULCER
     Dosage: 40 MG, 1X/DAY
     Route: 048
     Dates: end: 201302
  2. PROTONIX [Suspect]
     Indication: GASTROOESOPHAGEAL REFLUX DISEASE
  3. MONTELUKAST [Concomitant]
     Dosage: 10 MG, UNK
  4. VALIUM [Concomitant]
     Dosage: 10 MG, UNK
  5. TUSSIONEX PENNKINETIC [Concomitant]
     Dosage: UNK
  6. SERTRALINE [Concomitant]
     Dosage: 10 MG, UNK
  7. OXYBUTYNIN [Concomitant]
     Dosage: 10 MG, UNK
  8. DIGOXIN [Concomitant]
     Dosage: UNK
  9. OXYGEN [Concomitant]
     Dosage: UNK

REACTIONS (2)
  - Dyspepsia [Unknown]
  - Faeces discoloured [Unknown]
